FAERS Safety Report 13901369 (Version 1)
Quarter: 2017Q3

REPORT INFORMATION
  Report Type: Spontaneous
  Country: US (occurrence: US)
  Receive Date: 20170824
  Receipt Date: 20170824
  Transmission Date: 20171127
  Serious: No
  Sender: FDA-Public Use
  Company Number: PHEH2017US025749

PATIENT
  Age: 53 Year
  Sex: Female

DRUGS (1)
  1. RECLAST [Suspect]
     Active Substance: ZOLEDRONIC ACID
     Indication: PRODUCT USED FOR UNKNOWN INDICATION
     Dosage: UNK
     Route: 065
     Dates: start: 20170610

REACTIONS (4)
  - Upper respiratory tract infection [Recovered/Resolved]
  - Fatigue [Unknown]
  - Influenza like illness [Recovered/Resolved]
  - Myalgia [Unknown]
